FAERS Safety Report 8588681-2 (Version None)
Quarter: 2012Q3

REPORT INFORMATION
  Report Type: 
  Country: None (occurrence: None)
  Receive Date: 20120813
  Receipt Date: 20120807
  Transmission Date: 20120928
  Serious: Yes (Other)
  Sender: FDA-Public Use
  Company Number: PHHY2012JP047789

PATIENT
  Age: 80 Year
  Sex: Male

DRUGS (2)
  1. ZOMETA [Suspect]
     Indication: METASTASES TO BONE
     Dosage: 4 MG, UNK
     Route: 041
     Dates: start: 20120418
  2. TAXOTERE [Suspect]
     Dosage: UNK UKN, UNK
     Route: 042
     Dates: start: 20120418

REACTIONS (4)
  - RALES [None]
  - MYCOPLASMA TEST POSITIVE [None]
  - COUGH [None]
  - INTERSTITIAL LUNG DISEASE [None]
